FAERS Safety Report 7295963-3 (Version None)
Quarter: 2011Q1

REPORT INFORMATION
  Report Type: 
  Country: None (occurrence: None)
  Receive Date: 20110216
  Receipt Date: 20110209
  Transmission Date: 20110831
  Serious: No
  Sender: FDA-Public Use
  Company Number: US-ABBOTT-11P-163-0703727-00

PATIENT
  Sex: Male
  Weight: 104.42 kg

DRUGS (4)
  1. NOVALOG INSULIN PUMP [Suspect]
     Indication: BLOOD GLUCOSE ABNORMAL
  2. ASPIRIN [Concomitant]
     Indication: PRODUCT USED FOR UNKNOWN INDICATION
  3. SIMCOR [Suspect]
     Indication: PRODUCT USED FOR UNKNOWN INDICATION
     Dates: start: 20110207
  4. LISINOPRIL [Concomitant]
     Indication: PRODUCT USED FOR UNKNOWN INDICATION

REACTIONS (3)
  - BLOOD GLUCOSE INCREASED [None]
  - ABDOMINAL TENDERNESS [None]
  - ABDOMINAL PAIN [None]
